FAERS Safety Report 17223004 (Version 1)
Quarter: 2020Q1

REPORT INFORMATION
  Report Type: Report from Study
  Country: CA (occurrence: CA)
  Receive Date: 20200102
  Receipt Date: 20200102
  Transmission Date: 20200409
  Serious: Yes (Other)
  Sender: FDA-Public Use
  Company Number: CA-ORION CORPORATION ORION PHARMA-TREX2019-6159

PATIENT
  Age: 56 Year
  Sex: Female

DRUGS (14)
  1. COSENTYX [Suspect]
     Active Substance: SECUKINUMAB
     Route: 058
  2. COSENTYX [Suspect]
     Active Substance: SECUKINUMAB
     Route: 058
  3. ENBREL [Concomitant]
     Active Substance: ETANERCEPT
     Dosage: 365 (UNIT NOT SPECIFIED)
     Route: 058
  4. SULFASALAZINE. [Concomitant]
     Active Substance: SULFASALAZINE
     Dosage: 366 (UNIT NOT PROVIDED)
     Route: 048
  5. COSENTYX [Suspect]
     Active Substance: SECUKINUMAB
     Route: 058
  6. DESOXIMETASONE. [Suspect]
     Active Substance: DESOXIMETASONE
     Indication: PRODUCT USED FOR UNKNOWN INDICATION
     Route: 065
  7. COSENTYX [Suspect]
     Active Substance: SECUKINUMAB
     Route: 058
  8. LEFLUNOMIDE. [Suspect]
     Active Substance: LEFLUNOMIDE
     Indication: PRODUCT USED FOR UNKNOWN INDICATION
     Route: 048
  9. METHOTREXATE (TRADE NAME UNKNOWN) [Suspect]
     Active Substance: METHOTREXATE
     Indication: PRODUCT USED FOR UNKNOWN INDICATION
     Route: 065
  10. CIMZIA [Concomitant]
     Active Substance: CERTOLIZUMAB PEGOL
     Dosage: DURATION: 984 (UNITS NOT SPECIFIED)
     Route: 058
  11. COSENTYX [Suspect]
     Active Substance: SECUKINUMAB
     Indication: PSORIATIC ARTHROPATHY
     Route: 058
  12. COSENTYX [Suspect]
     Active Substance: SECUKINUMAB
     Route: 058
  13. HUMIRA [Concomitant]
     Active Substance: ADALIMUMAB
     Dosage: 365 (UNIT NOT SPECIFIED)
     Route: 058
  14. REMICADE [Concomitant]
     Active Substance: INFLIXIMAB
     Route: 042

REACTIONS (6)
  - Dysstasia [Unknown]
  - Gait disturbance [Unknown]
  - Cellulitis [Unknown]
  - Nasopharyngitis [Unknown]
  - Peripheral swelling [Unknown]
  - Movement disorder [Unknown]
